FAERS Safety Report 23391420 (Version 2)
Quarter: 2025Q1

REPORT INFORMATION
  Report Type: Spontaneous
  Country: CZ (occurrence: CZ)
  Receive Date: 20240111
  Receipt Date: 20250218
  Transmission Date: 20250408
  Serious: Yes (Other)
  Sender: NOVARTIS
  Company Number: CZ-TEVA-VS-3138832

PATIENT
  Age: 14 Year
  Sex: Male

DRUGS (4)
  1. CYCLOSPORINE [Suspect]
     Active Substance: CYCLOSPORINE
     Indication: Myelosuppression
     Dosage: 5 MG/KG, QD
     Route: 065
  2. CYCLOSPORINE [Suspect]
     Active Substance: CYCLOSPORINE
     Indication: Pancytopenia
  3. THYMOCYTE IMMUNE GLOBULIN NOS [Concomitant]
     Active Substance: THYMOCYTE IMMUNE GLOBULIN NOS
     Indication: Product used for unknown indication
     Route: 065
  4. RAVULIZUMAB [Concomitant]
     Active Substance: RAVULIZUMAB
     Indication: Product used for unknown indication
     Route: 065

REACTIONS (2)
  - Paroxysmal nocturnal haemoglobinuria [Unknown]
  - Drug ineffective [Unknown]
